FAERS Safety Report 22917074 (Version 3)
Quarter: 2023Q4

REPORT INFORMATION
  Report Type: Spontaneous
  Country: US (occurrence: US)
  Receive Date: 20230907
  Receipt Date: 20231025
  Transmission Date: 20240109
  Serious: Yes (Other)
  Sender: FDA-Public Use
  Company Number: US-UPSHER-SMITH LABORATORIES, LLC-2023USL00768

PATIENT
  Sex: Male
  Weight: 113.38 kg

DRUGS (9)
  1. ISOTRETINOIN [Suspect]
     Active Substance: ISOTRETINOIN
     Indication: Acne fulminans
     Dosage: 40 MG, 1X/DAY
     Route: 048
     Dates: start: 20230717, end: 20230822
  2. ISOTRETINOIN [Suspect]
     Active Substance: ISOTRETINOIN
     Indication: Rosacea
  3. ISOTRETINOIN [Suspect]
     Active Substance: ISOTRETINOIN
     Indication: Acne
  4. PREDNISONE [Concomitant]
     Active Substance: PREDNISONE
     Dosage: 30 MG, 1X/DAY IN THE AM FOR 2 WEEKS
     Route: 048
     Dates: start: 202306, end: 202307
  5. PREDNISONE [Concomitant]
     Active Substance: PREDNISONE
     Dosage: 20 MG, 1X/DAY IN THE AM FOR 2 WEEKS
     Route: 048
     Dates: start: 202307, end: 202307
  6. PREDNISONE [Concomitant]
     Active Substance: PREDNISONE
     Dosage: 10 MG, 1X/DAY FOR 2 WEEKS
     Route: 048
     Dates: start: 202307, end: 202308
  7. ARIPIPRAZOLE [Concomitant]
     Active Substance: ARIPIPRAZOLE
     Dosage: 5 MG
     Route: 048
  8. BUPROPION HYDROCHLORIDE [Concomitant]
     Active Substance: BUPROPION HYDROCHLORIDE
     Dosage: 150 MG
     Route: 048
  9. LOSARTAN [Concomitant]
     Active Substance: LOSARTAN
     Dosage: 25 MG
     Route: 048

REACTIONS (6)
  - Hallucination [Unknown]
  - Mood altered [Unknown]
  - Anxiety [Unknown]
  - Insomnia [Unknown]
  - Visual impairment [Unknown]
  - Tinnitus [Unknown]

NARRATIVE: CASE EVENT DATE: 20230101
